FAERS Safety Report 6102300-6 (Version None)
Quarter: 2009Q1

REPORT INFORMATION
  Report Type: 
  Country: None (occurrence: None)
  Receive Date: 20090304
  Receipt Date: 20090302
  Transmission Date: 20090719
  Serious: Yes (Life-Threatening, Hospitalization)
  Sender: FDA-Public Use
  Company Number: ES-GILEAD-E2B_00000297

PATIENT
  Age: 45 Year
  Sex: Female
  Weight: 63 kg

DRUGS (1)
  1. ATRIPLA [Suspect]
     Indication: HIV INFECTION
     Route: 048
     Dates: start: 20080815, end: 20081226

REACTIONS (2)
  - ENCEPHALOPATHY [None]
  - HEPATITIS ACUTE [None]
